FAERS Safety Report 5573800-2 (Version None)
Quarter: 2007Q4

REPORT INFORMATION
  Report Type: 
  Country: None (occurrence: None)
  Receive Date: 20071226
  Receipt Date: 20071217
  Transmission Date: 20080405
  Serious: Yes (Other)
  Sender: FDA-Public Use
  Company Number: PFIZER INC-2007105768

PATIENT
  Age: 60 Year
  Sex: Male

DRUGS (4)
  1. LINEZOLID [Suspect]
  2. PIPERACILLIN AND TAZOBACTAM [Concomitant]
     Dosage: DAILY DOSE:4GRAM
  3. AMIKACIN [Concomitant]
     Dosage: DAILY DOSE:1GRAM
  4. VANCOMYCIN [Concomitant]
     Dosage: DAILY DOSE:1.5GRAM

REACTIONS (1)
  - NEPHRITIS INTERSTITIAL [None]
